FAERS Safety Report 11568872 (Version 1)
Quarter: 2015Q3

REPORT INFORMATION
  Report Type: Spontaneous
  Country: IT (occurrence: IT)
  Receive Date: 20150929
  Receipt Date: 20150929
  Transmission Date: 20151125
  Serious: Yes (Hospitalization)
  Sender: FDA-Public Use
  Company Number: IT-DEP_12746_2015

PATIENT
  Age: 39 Year
  Sex: Female

DRUGS (15)
  1. SEACOR - OMEGA-3 TRIGLYCERIDES [Concomitant]
     Dosage: DF
  2. DELTACORTENE - PREDNISONE [Concomitant]
     Dosage: DF
  3. ARCOXIA - ETORICOXIB [Concomitant]
     Dosage: DF
  4. DIBASE - COLECALCIFEROL [Concomitant]
     Dosage: DF
  5. GABAPENTIN. [Concomitant]
     Active Substance: GABAPENTIN
     Dosage: DF
  6. NEXIUM [Concomitant]
     Active Substance: ESOMEPRAZOLE MAGNESIUM
     Dosage: DF
  7. PALEXIA [Suspect]
     Active Substance: TAPENTADOL HYDROCHLORIDE
     Indication: PAIN
     Dosage: 100 MG, ONCE
     Route: 048
     Dates: start: 20150817, end: 20150817
  8. LEDERFOLIN - CALCIUM FOLINATE [Concomitant]
     Dosage: DF
  9. SEROQUEL [Concomitant]
     Active Substance: QUETIAPINE FUMARATE
     Dosage: DF
  10. VALDORM [Concomitant]
     Active Substance: VALERIAN
     Dosage: DF
  11. FOSTER - BECLOMETASONE DIPROPIONATE, FORMOTEROL FUMARATE [Concomitant]
     Dosage: DF
  12. STILNOX [Concomitant]
     Active Substance: ZOLPIDEM TARTRATE
     Dosage: DF
  13. TAVOR [Concomitant]
     Active Substance: LORAZEPAM
     Dosage: DF
  14. SINGULAIR - MONTELUKAST SODIUM [Concomitant]
     Dosage: DF
  15. EUTIROX - LEVOTHYROXINE SODIUM [Concomitant]
     Dosage: DF

REACTIONS (4)
  - Drug interaction [Unknown]
  - Sopor [Unknown]
  - Dyspnoea [Unknown]
  - Drug abuse [Unknown]

NARRATIVE: CASE EVENT DATE: 20150817
